FAERS Safety Report 5851452-1 (Version None)
Quarter: 2008Q3

REPORT INFORMATION
  Report Type: 
  Country: None (occurrence: None)
  Receive Date: 20080731
  Receipt Date: 20080522
  Transmission Date: 20090109
  Serious: No
  Sender: FDA-Public Use
  Company Number: US200804003782

PATIENT
  Age: 65 Year
  Sex: Female

DRUGS (6)
  1. BYETTA [Suspect]
     Indication: WEIGHT DECREASED
     Dates: start: 20070101, end: 20070101
  2. EXENATIDE PEN, DISPOSABLE DEVICE (EXENATIDE PEN) PEN,DISPOSABLE [Concomitant]
  3. HUMALOG [Concomitant]
  4. NOVOLIN N [Concomitant]
  5. LANTUS [Concomitant]
  6. NOVOLIN R [Concomitant]

REACTIONS (2)
  - ADVERSE DRUG REACTION [None]
  - NAUSEA [None]
